FAERS Safety Report 4359996-9 (Version None)
Quarter: 2004Q2

REPORT INFORMATION
  Report Type: 
  Country: None (occurrence: None)
  Receive Date: 20040513
  Receipt Date: 20040505
  Transmission Date: 20050107
  Serious: Yes (Other)
  Sender: FDA-Public Use
  Company Number: AU-JNJFOC-20040501168

PATIENT
  Sex: Female

DRUGS (2)
  1. RISPERDAL [Suspect]
     Dosage: 1 MG
  2. LITHIUM (LITHIUM) [Suspect]
     Dosage: 1000 MG

REACTIONS (1)
  - INTRACRANIAL PRESSURE INCREASED [None]
